FAERS Safety Report 5060540-1 (Version None)
Quarter: 2006Q2

REPORT INFORMATION
  Report Type: 
  Country: None (occurrence: None)
  Receive Date: 20060630
  Receipt Date: 20060316
  Transmission Date: 20061013
  Serious: Yes (Hospitalization)
  Sender: FDA-Public Use
  Company Number: VISP-PR-0603S-0148

PATIENT
  Sex: Male

DRUGS (2)
  1. VISIPAQUE [Suspect]
     Indication: CORONARY ARTERY DISEASE
     Dosage: SINGLE DOSE, I.A.
     Dates: start: 20060310, end: 20060310
  2. UNKNOWN SEDATIVE AND PAIN MEDICATION [Concomitant]

REACTIONS (1)
  - REVERSIBLE ISCHAEMIC NEUROLOGICAL DEFICIT [None]
